FAERS Safety Report 8130455-0 (Version None)
Quarter: 2012Q1

REPORT INFORMATION
  Report Type: 
  Country: None (occurrence: None)
  Receive Date: 20120210
  Receipt Date: 20120203
  Transmission Date: 20120608
  Serious: Yes (Hospitalization)
  Sender: FDA-Public Use
  Company Number: US-MERCK-1202USA00696

PATIENT
  Age: 63 Year
  Sex: Male
  Weight: 103 kg

DRUGS (25)
  1. DECADRON [Suspect]
     Indication: MYELOPATHY
     Route: 048
  2. NIACINAMIDE [Concomitant]
     Route: 065
  3. RIBOFLAVIN [Concomitant]
     Route: 065
  4. ZYRTEC [Concomitant]
     Route: 065
  5. CHOLECALCIFEROL [Concomitant]
     Route: 065
  6. THIAMINE HYDROCHLORIDE [Concomitant]
     Route: 065
  7. REDISOL [Concomitant]
     Route: 065
  8. ZOMETA [Suspect]
     Indication: METASTASES TO PROSTATE
     Route: 065
  9. PROVENGE [Suspect]
     Indication: PROSTATE CANCER
     Route: 042
     Dates: start: 20111024, end: 20111024
  10. POLYETHYLENE GLYCOL [Concomitant]
     Route: 065
  11. CHOLECALCIFEROL [Concomitant]
     Route: 065
  12. ERGOCALCIFEROL [Concomitant]
     Route: 065
  13. PROVENGE [Suspect]
     Indication: PROSTATE CANCER METASTATIC
     Route: 042
     Dates: start: 20111024, end: 20111024
  14. NEURONTIN [Concomitant]
     Route: 065
  15. MIRALAX [Concomitant]
     Route: 065
  16. FERROUS SULFATE [Concomitant]
     Route: 065
  17. CITRACAL + D [Concomitant]
     Route: 065
  18. CASODEX [Concomitant]
     Route: 065
  19. ZOFRAN [Concomitant]
     Route: 065
  20. VITAMINS (UNSPECIFIED) [Concomitant]
     Route: 065
  21. CYANOCOBALAMIN [Concomitant]
     Route: 065
  22. VITAMIN A [Concomitant]
     Route: 065
  23. PYRIDOXINE HYDROCHLORIDE [Concomitant]
     Route: 065
  24. ASCORBIC ACID [Concomitant]
     Route: 065
  25. ZOMETA [Suspect]
     Indication: PROSTATE CANCER METASTATIC
     Route: 065

REACTIONS (16)
  - PLEURAL EFFUSION [None]
  - BONE MARROW DISORDER [None]
  - DEFORMITY [None]
  - ABASIA [None]
  - INTERVERTEBRAL DISC DISORDER [None]
  - ADVERSE EVENT [None]
  - ATELECTASIS [None]
  - HYPERGLYCAEMIA [None]
  - DISEASE PROGRESSION [None]
  - METASTATIC NEOPLASM [None]
  - CARDIOMEGALY [None]
  - MYELITIS TRANSVERSE [None]
  - DYSAESTHESIA [None]
  - EXTRASYSTOLES [None]
  - PAIN [None]
  - SYSTEMIC SCLEROSIS [None]
